FAERS Safety Report 7874607-3 (Version None)
Quarter: 2011Q4

REPORT INFORMATION
  Report Type: 
  Country: None (occurrence: None)
  Receive Date: 20111031
  Receipt Date: 20111021
  Transmission Date: 20120403
  Serious: Yes (Other)
  Sender: FDA-Public Use
  Company Number: US-PFIZER INC-2011257519

PATIENT
  Sex: Female

DRUGS (2)
  1. TOPROL-XL [Suspect]
     Dosage: UNK
  2. LYRICA [Suspect]
     Dosage: UNK

REACTIONS (7)
  - DYSPNOEA [None]
  - SKIN BURNING SENSATION [None]
  - BLISTER [None]
  - OEDEMA PERIPHERAL [None]
  - WEIGHT INCREASED [None]
  - RASH [None]
  - ERYTHEMA [None]
